FAERS Safety Report 9856422 (Version 1)
Quarter: 2014Q1

REPORT INFORMATION
  Report Type: Spontaneous
  Country: FR (occurrence: FR)
  Receive Date: 20140130
  Receipt Date: 20140130
  Transmission Date: 20141002
  Serious: Yes (Hospitalization)
  Sender: FDA-Public Use
  Company Number: FR-JNJFOC-20140114906

PATIENT
  Age: 23 Year
  Sex: Female

DRUGS (4)
  1. REMICADE [Suspect]
     Indication: PRODUCT USED FOR UNKNOWN INDICATION
     Dosage: 232 DAYS??ON 17TH-DEC-2013 8TH INFUSION WAS PERFOMED
     Route: 042
     Dates: start: 20130430
  2. REMICADE [Suspect]
     Indication: PRODUCT USED FOR UNKNOWN INDICATION
     Dosage: 8TH INFUSION
     Route: 042
     Dates: start: 20131217, end: 20131217
  3. IMUREL [Concomitant]
     Route: 048
  4. KARDEGIC [Concomitant]
     Route: 048
     Dates: start: 2012

REACTIONS (3)
  - Paraesthesia [Recovered/Resolved]
  - Optic neuritis [Recovering/Resolving]
  - Toothache [Unknown]
